FAERS Safety Report 7693011-4 (Version None)
Quarter: 2011Q3

REPORT INFORMATION
  Report Type: 
  Country: None (occurrence: None)
  Receive Date: 20110816
  Receipt Date: 20110805
  Transmission Date: 20111222
  Serious: Yes (Other)
  Sender: FDA-Public Use
  Company Number: 1006871

PATIENT
  Age: 40 Year
  Sex: Female
  Weight: 81 kg

DRUGS (2)
  1. DOBUTAMINE HCL [Suspect]
     Indication: STRESS ECHOCARDIOGRAM
     Dosage: SEE IMAGE
     Route: 042
     Dates: start: 20110716, end: 20110716
  2. DOBUTAMINE HCL [Suspect]
     Indication: STRESS ECHOCARDIOGRAM
     Dosage: SEE IMAGE
     Route: 042
     Dates: start: 20110716, end: 20110716

REACTIONS (4)
  - HEART RATE INCREASED [None]
  - HYPERVENTILATION [None]
  - CHILLS [None]
  - NO THERAPEUTIC RESPONSE [None]
